FAERS Safety Report 6968826-8 (Version None)
Quarter: 2010Q3

REPORT INFORMATION
  Report Type: 
  Country: None (occurrence: None)
  Receive Date: 20100902
  Receipt Date: 20100624
  Transmission Date: 20110219
  Serious: Yes (Disabling)
  Sender: FDA-Public Use
  Company Number: APP200900443

PATIENT
  Age: 54 Year
  Sex: Male

DRUGS (6)
  1. SENSORCAINE [Suspect]
     Indication: MUSCULOSKELETAL PAIN
     Dosage: CONTINUOUS VIA PUMP, INTRA-ARTICULAR; 30 ML, WITH EPINEPHRINE, VIA 5 ARTHROSCOPIC PORTALS
     Route: 014
     Dates: start: 20050908
  2. SENSORCAINE [Suspect]
     Indication: MUSCULOSKELETAL PAIN
     Dosage: CONTINUOUS VIA PUMP, INTRA-ARTICULAR; 30 ML, WITH EPINEPHRINE, VIA 5 ARTHROSCOPIC PORTALS
     Route: 014
     Dates: start: 20050908
  3. SENSORCAINE [Suspect]
     Indication: MUSCULOSKELETAL PAIN
     Dosage: CONTINUOUS VIA PUMP, INTRA-ARTICULAR; 30 ML, WITH EPINEPHRINE, VIA 5 ARTHROSCOPIC PORTALS
     Route: 014
     Dates: start: 20060406
  4. STRYKER PAIN PUMP [Suspect]
     Indication: MUSCULOSKELETAL PAIN
     Dates: start: 20050908
  5. XYLOCAINE [Suspect]
     Indication: PRODUCT USED FOR UNKNOWN INDICATION
     Dosage: 10 MG (5) X 10
     Dates: start: 20050908
  6. PAIN PUMP [Suspect]
     Indication: PRODUCT USED FOR UNKNOWN INDICATION
     Dates: start: 20060406

REACTIONS (6)
  - CONDITION AGGRAVATED [None]
  - JOINT INJURY [None]
  - JOINT RANGE OF MOTION DECREASED [None]
  - MUSCULOSKELETAL PAIN [None]
  - ROTATOR CUFF SYNDROME [None]
  - SYNOVIAL CYST [None]
